FAERS Safety Report 5935243-9 (Version None)
Quarter: 2008Q4

REPORT INFORMATION
  Report Type: 
  Country: None (occurrence: None)
  Receive Date: 20081030
  Receipt Date: 20081021
  Transmission Date: 20090506
  Serious: Yes (Life-Threatening)
  Sender: FDA-Public Use
  Company Number: US-BRACCO-002025

PATIENT
  Age: 85 Year
  Sex: Male

DRUGS (4)
  1. MULTIHANCE [Suspect]
     Indication: ANGIOGRAM
     Route: 042
     Dates: start: 20081017, end: 20081017
  2. MULTIHANCE [Suspect]
     Indication: DYSARTHRIA
     Route: 042
     Dates: start: 20081017, end: 20081017
  3. MULTIHANCE [Suspect]
     Indication: FACIAL PALSY
     Route: 042
     Dates: start: 20081017, end: 20081017
  4. OXYGEN [Concomitant]
     Route: 055
     Dates: start: 20081017, end: 20081017

REACTIONS (6)
  - CARDIO-RESPIRATORY ARREST [None]
  - CONVULSION [None]
  - EYE PRURITUS [None]
  - MUSCLE RIGIDITY [None]
  - PULSE ABSENT [None]
  - RESPIRATORY RATE DECREASED [None]
